FAERS Safety Report 10655161 (Version 1)
Quarter: 2014Q4

REPORT INFORMATION
  Report Type: Spontaneous
  Country: JP (occurrence: None)
  Receive Date: 20141212
  Receipt Date: 20141212
  Transmission Date: 20150529
  Serious: Yes (Hospitalization, Other)
  Sender: FDA-Public Use
  Company Number: 2014RR-88261

PATIENT
  Age: 42 Year
  Sex: Male

DRUGS (5)
  1. LORMETAZEPAM (LORMETAZEPAM) [Suspect]
     Active Substance: LORMETAZEPAM
     Indication: DEPRESSION
  2. ETIZOLAM (ETIZOLAM) TABLET [Suspect]
     Active Substance: ETIZOLAM
     Indication: DEPRESSION
  3. CLOTIAZEPAM [Suspect]
     Active Substance: CLOTIAZEPAM
     Indication: DEPRESSION
  4. PARACETAMOL (PARACETAMOL) [Suspect]
     Active Substance: ACETAMINOPHEN
     Indication: PRODUCT USED FOR UNKNOWN INDICATION
  5. FLUNITRAZEPAM [Suspect]
     Active Substance: FLUNITRAZEPAM
     Indication: DEPRESSION

REACTIONS (6)
  - Drug dependence [None]
  - Generalised tonic-clonic seizure [None]
  - Hepatic function abnormal [None]
  - Delirium [None]
  - Drug withdrawal syndrome [None]
  - Overdose [None]
